FAERS Safety Report 11814101 (Version 2)
Quarter: 2015Q4

REPORT INFORMATION
  Report Type: Spontaneous
  Country: FR (occurrence: FR)
  Receive Date: 20151209
  Receipt Date: 20151217
  Transmission Date: 20160305
  Serious: Yes (Life-Threatening, Hospitalization)
  Sender: FDA-Public Use
  Company Number: FR-PFIZER INC-2015423052

PATIENT
  Age: 47 Year
  Sex: Male

DRUGS (3)
  1. STILNOX [Suspect]
     Active Substance: ZOLPIDEM TARTRATE
     Dosage: 140 MG (10 MG X 14), SINGLE
     Route: 048
     Dates: start: 20151003, end: 20151004
  2. BACLOFEN. [Suspect]
     Active Substance: BACLOFEN
     Dosage: SINGLE
     Route: 048
     Dates: start: 20151004, end: 20151004
  3. LYRICA [Suspect]
     Active Substance: PREGABALIN
     Dosage: SINGLE
     Route: 048
     Dates: start: 20151004, end: 20151004

REACTIONS (6)
  - Coma [Recovered/Resolved]
  - Aggression [Unknown]
  - Somnolence [Unknown]
  - Drug level above therapeutic [Unknown]
  - Intentional overdose [Unknown]
  - Agitation [Unknown]

NARRATIVE: CASE EVENT DATE: 20151003
